FAERS Safety Report 8488101-2 (Version None)
Quarter: 2012Q3

REPORT INFORMATION
  Report Type: 
  Country: None (occurrence: None)
  Receive Date: 20120705
  Receipt Date: 20120625
  Transmission Date: 20120928
  Serious: Yes (Hospitalization)
  Sender: FDA-Public Use
  Company Number: JP-VERTEX PHARMACEUTICALS INC.-AE-2012-008338

PATIENT
  Age: 58 Year
  Sex: Male

DRUGS (15)
  1. REBETOL [Concomitant]
     Route: 048
     Dates: start: 20120530
  2. REBETOL [Concomitant]
     Route: 048
     Dates: start: 20120502, end: 20120516
  3. DIOVAN [Concomitant]
     Route: 048
  4. TELAVIC (TELAPREVIR) [Suspect]
     Indication: HEPATITIS C
     Route: 048
     Dates: start: 20120404, end: 20120522
  5. REBETOL [Concomitant]
     Route: 048
     Dates: start: 20120425, end: 20120501
  6. REBETOL [Concomitant]
     Route: 048
     Dates: start: 20120517, end: 20120529
  7. CELESTAMINE TAB [Concomitant]
     Route: 048
     Dates: start: 20120606, end: 20120612
  8. REBETOL [Concomitant]
     Indication: HEPATITIS C
     Route: 048
     Dates: start: 20120404, end: 20120424
  9. TELAVIC (TELAPREVIR) [Suspect]
     Route: 048
     Dates: start: 20120523, end: 20120605
  10. PEG-INTRON [Concomitant]
     Indication: HEPATITIS C
     Route: 058
     Dates: start: 20120404
  11. GOODMIN [Concomitant]
     Route: 048
     Dates: start: 20120404
  12. ETHYL ICOSAPENTATE [Concomitant]
     Route: 048
  13. DOGMATYL [Concomitant]
     Route: 048
     Dates: start: 20120516
  14. TELAVIC (TELAPREVIR) [Suspect]
     Route: 048
     Dates: start: 20120606
  15. NERISONA [Concomitant]
     Route: 061
     Dates: start: 20120606, end: 20120612

REACTIONS (4)
  - MALAISE [None]
  - INSOMNIA [None]
  - SLEEP DISORDER [None]
  - ANAEMIA [None]
